FAERS Safety Report 6819145-1 (Version None)
Quarter: 2010Q3

REPORT INFORMATION
  Report Type: 
  Country: None (occurrence: None)
  Receive Date: 20100707
  Receipt Date: 20100701
  Transmission Date: 20110219
  Serious: Yes (Life-Threatening)
  Sender: FDA-Public Use
  Company Number: GB-SHIRE-PNT1-2010-00013

PATIENT

DRUGS (1)
  1. 476 (MESALAZINE/MESALAMINE) [Suspect]
     Indication: DIVERTICULITIS
     Dosage: 2.4 G, 1X/DAY:QD
     Route: 048
     Dates: start: 20090907, end: 20100510

REACTIONS (1)
  - CONVULSION [None]
